FAERS Safety Report 8115402-X (Version None)
Quarter: 2012Q1

REPORT INFORMATION
  Report Type: 
  Country: None (occurrence: None)
  Receive Date: 20120206
  Receipt Date: 20120206
  Transmission Date: 20120608
  Serious: No
  Sender: FDA-Public Use
  Company Number: None

PATIENT
  Age: 54 Year
  Sex: Female
  Weight: 74.842 kg

DRUGS (3)
  1. ANASTROZOLE [Suspect]
     Indication: OESTROGEN RECEPTOR ASSAY POSITIVE
     Dosage: 1 TABLET -1MG.-
     Route: 048
     Dates: start: 20110308, end: 20110911
  2. ANASTROZOLE [Suspect]
     Indication: BREAST CANCER
     Dosage: 1 TABLET -1MG.-
     Route: 048
     Dates: start: 20110308, end: 20110911
  3. ANASTROZOLE [Suspect]
     Indication: PROGESTERONE RECEPTOR ASSAY POSITIVE
     Dosage: 1 TABLET -1MG.-
     Route: 048
     Dates: start: 20110308, end: 20110911

REACTIONS (4)
  - JOINT SWELLING [None]
  - ABASIA [None]
  - ARTHRALGIA [None]
  - SCOLIOSIS [None]
